FAERS Safety Report 12977638 (Version 1)
Quarter: 2016Q4

REPORT INFORMATION
  Report Type: Spontaneous
  Country: US (occurrence: US)
  Receive Date: 20161125
  Receipt Date: 20161125
  Transmission Date: 20170207
  Serious: No
  Sender: FDA-Public Use
  Company Number: None

PATIENT
  Age: 65 Year
  Sex: Female
  Weight: 51.75 kg

DRUGS (3)
  1. CRESTOR [Concomitant]
     Active Substance: ROSUVASTATIN CALCIUM
  2. PROPOFOL FOR INJECTION [Suspect]
     Active Substance: PROPOFOL
     Indication: ANAESTHESIA
     Dosage: ?          OTHER FREQUENCY:PRE-PROCEDURE;?
     Route: 042
  3. PROPOFOL FOR INJECTION [Suspect]
     Active Substance: PROPOFOL
     Indication: COLONOSCOPY
     Dosage: ?          OTHER FREQUENCY:PRE-PROCEDURE;?
     Route: 042

REACTIONS (3)
  - Rhinorrhoea [None]
  - Lacrimation increased [None]
  - Sneezing [None]

NARRATIVE: CASE EVENT DATE: 20161019
